FAERS Safety Report 8618878-4 (Version None)
Quarter: 2012Q3

REPORT INFORMATION
  Report Type: 
  Country: None (occurrence: None)
  Receive Date: 20120824
  Receipt Date: 20120821
  Transmission Date: 20120928
  Serious: Yes (Other)
  Sender: FDA-Public Use
  Company Number: IE-PFIZER INC-2012205656

PATIENT
  Sex: Female

DRUGS (1)
  1. SUTENT [Suspect]
     Dosage: 25 MG, 1X/DAY, 4 WEEKS ON 2 WEEKS OFF

REACTIONS (6)
  - EPISTAXIS [None]
  - FATIGUE [None]
  - DYSPEPSIA [None]
  - CONSTIPATION [None]
  - TUMOUR PAIN [None]
  - NAUSEA [None]
